FAERS Safety Report 4633081-0 (Version None)
Quarter: 2005Q2

REPORT INFORMATION
  Report Type: 
  Country: None (occurrence: None)
  Receive Date: 20050411
  Receipt Date: 20050411
  Transmission Date: 20051028
  Serious: Yes (Life-Threatening)
  Sender: FDA-Public Use
  Company Number: None

PATIENT
  Sex: Female
  Weight: 61.2356 kg

DRUGS (1)
  1. CLARITIN [Suspect]
     Indication: SEASONAL ALLERGY
     Dosage: 10 MG DAILY ORAL
     Route: 048
     Dates: start: 20040305, end: 20040315

REACTIONS (2)
  - PSYCHOTIC DISORDER [None]
  - SUICIDAL IDEATION [None]
